FAERS Safety Report 9350884 (Version 2)
Quarter: 2013Q3

REPORT INFORMATION
  Report Type: Spontaneous
  Country: JP (occurrence: JP)
  Receive Date: 20130617
  Receipt Date: 20130722
  Transmission Date: 20140515
  Serious: Yes (Other)
  Sender: FDA-Public Use
  Company Number: JP-ASTELLAS-2013JP006667

PATIENT
  Sex: Male
  Weight: 65 kg

DRUGS (6)
  1. PROGRAF [Suspect]
     Indication: COLITIS ULCERATIVE
     Route: 048
  2. PROGRAF [Suspect]
     Route: 048
  3. 5 ASA [Concomitant]
     Indication: COLITIS ULCERATIVE
     Route: 065
  4. CORTICOSTEROID NOS [Concomitant]
     Indication: COLITIS ULCERATIVE
     Route: 065
  5. AZATHIOPRINE [Concomitant]
     Indication: COLITIS ULCERATIVE
     Route: 048
  6. REMICADE [Concomitant]
     Indication: COLITIS ULCERATIVE
     Route: 065

REACTIONS (3)
  - Renal disorder [Unknown]
  - Tremor [Unknown]
  - Hypomagnesaemia [Unknown]
